FAERS Safety Report 8499195-2 (Version None)
Quarter: 2012Q2

REPORT INFORMATION
  Report Type: 
  Country: None (occurrence: None)
  Receive Date: 20120613
  Receipt Date: 20120601
  Transmission Date: 20120825
  Serious: Yes (Other)
  Sender: FDA-Public Use
  Company Number: 2012031763

PATIENT
  Sex: Female
  Weight: 61.2356 kg

DRUGS (41)
  1. HIZENTRA [Suspect]
  2. HIZENTRA [Suspect]
  3. HIZENTRA [Suspect]
  4. HIZENTRA [Suspect]
  5. HIZENTRA [Suspect]
  6. HIZENTRA [Suspect]
  7. HIZENTRA [Suspect]
  8. HIZENTRA [Suspect]
  9. HIZENTRA [Suspect]
  10. HIZENTRA [Suspect]
  11. HIZENTRA [Suspect]
  12. HIZENTRA [Suspect]
  13. HIZENTRA [Suspect]
  14. HIZENTRA [Suspect]
  15. HIZENTRA [Suspect]
     Indication: HYPOGAMMAGLOBULINAEMIA
     Dosage: 10 G 1X/WEEK, SUBCUTANEOUS
     Route: 058
     Dates: start: 20111214
  16. HIZENTRA [Suspect]
     Indication: HUMORAL IMMUNE DEFECT
     Dosage: 10 G 1X/WEEK, SUBCUTANEOUS
     Route: 058
     Dates: start: 20111214
  17. HIZENTRA [Suspect]
     Indication: IMMUNODEFICIENCY COMMON VARIABLE
     Dosage: 10 G 1X/WEEK, SUBCUTANEOUS
     Route: 058
     Dates: start: 20111214
  18. HIZENTRA [Suspect]
     Indication: HYPOGAMMAGLOBULINAEMIA
     Dosage: 10 G 1X/WEEK, SUBCUTANEOUS
     Route: 058
     Dates: start: 20120119
  19. HIZENTRA [Suspect]
     Indication: HUMORAL IMMUNE DEFECT
     Dosage: 10 G 1X/WEEK, SUBCUTANEOUS
     Route: 058
     Dates: start: 20120119
  20. HIZENTRA [Suspect]
     Indication: IMMUNODEFICIENCY COMMON VARIABLE
     Dosage: 10 G 1X/WEEK, SUBCUTANEOUS
     Route: 058
     Dates: start: 20120119
  21. HIZENTRA [Suspect]
     Indication: HYPOGAMMAGLOBULINAEMIA
     Dosage: 10 G 1X/WEEK, SUBCUTANEOUS
     Route: 058
     Dates: start: 20110804
  22. HIZENTRA [Suspect]
     Indication: HUMORAL IMMUNE DEFECT
     Dosage: 10 G 1X/WEEK, SUBCUTANEOUS
     Route: 058
     Dates: start: 20110804
  23. HIZENTRA [Suspect]
     Indication: IMMUNODEFICIENCY COMMON VARIABLE
     Dosage: 10 G 1X/WEEK, SUBCUTANEOUS
     Route: 058
     Dates: start: 20110804
  24. HIZENTRA [Suspect]
     Indication: HYPOGAMMAGLOBULINAEMIA
     Dosage: 10 G 1X/WEEK, SUBCUTANEOUS
     Route: 058
     Dates: start: 20110705
  25. HIZENTRA [Suspect]
     Indication: HUMORAL IMMUNE DEFECT
     Dosage: 10 G 1X/WEEK, SUBCUTANEOUS
     Route: 058
     Dates: start: 20110705
  26. HIZENTRA [Suspect]
     Indication: IMMUNODEFICIENCY COMMON VARIABLE
     Dosage: 10 G 1X/WEEK, SUBCUTANEOUS
     Route: 058
     Dates: start: 20110705
  27. HIZENTRA [Suspect]
     Indication: HYPOGAMMAGLOBULINAEMIA
     Dosage: 10 G 1X/WEEK, SUBCUTANEOUS
     Route: 058
     Dates: start: 20111104
  28. HIZENTRA [Suspect]
     Indication: HUMORAL IMMUNE DEFECT
     Dosage: 10 G 1X/WEEK, SUBCUTANEOUS
     Route: 058
     Dates: start: 20111104
  29. HIZENTRA [Suspect]
     Indication: IMMUNODEFICIENCY COMMON VARIABLE
     Dosage: 10 G 1X/WEEK, SUBCUTANEOUS
     Route: 058
     Dates: start: 20111104
  30. HIZENTRA [Suspect]
     Indication: HYPOGAMMAGLOBULINAEMIA
     Dosage: 10 G 1X/WEEK, SUBCUTANEOUS
     Route: 058
     Dates: start: 20110511
  31. HIZENTRA [Suspect]
     Indication: HUMORAL IMMUNE DEFECT
     Dosage: 10 G 1X/WEEK, SUBCUTANEOUS
     Route: 058
     Dates: start: 20110511
  32. HIZENTRA [Suspect]
     Indication: IMMUNODEFICIENCY COMMON VARIABLE
     Dosage: 10 G 1X/WEEK, SUBCUTANEOUS
     Route: 058
     Dates: start: 20110511
  33. HIZENTRA [Suspect]
     Indication: HYPOGAMMAGLOBULINAEMIA
     Dosage: 10 G 1X/WEEK, SUBCUTANEOUS
     Route: 058
     Dates: start: 20110501
  34. HIZENTRA [Suspect]
     Indication: HUMORAL IMMUNE DEFECT
     Dosage: 10 G 1X/WEEK, SUBCUTANEOUS
     Route: 058
     Dates: start: 20110501
  35. HIZENTRA [Suspect]
     Indication: IMMUNODEFICIENCY COMMON VARIABLE
     Dosage: 10 G 1X/WEEK, SUBCUTANEOUS
     Route: 058
     Dates: start: 20110501
  36. HIZENTRA [Suspect]
     Indication: HYPOGAMMAGLOBULINAEMIA
     Dosage: 10 G 1X/WEEK, SUBCUTANEOUS
     Route: 058
     Dates: start: 20120417
  37. HIZENTRA [Suspect]
     Indication: HUMORAL IMMUNE DEFECT
     Dosage: 10 G 1X/WEEK, SUBCUTANEOUS
     Route: 058
     Dates: start: 20120417
  38. HIZENTRA [Suspect]
     Indication: IMMUNODEFICIENCY COMMON VARIABLE
     Dosage: 10 G 1X/WEEK, SUBCUTANEOUS
     Route: 058
     Dates: start: 20120417
  39. HIZENTRA [Suspect]
  40. HIZENTRA [Suspect]
  41. HIZENTRA [Suspect]

REACTIONS (2)
  - TRANSMISSION OF AN INFECTIOUS AGENT VIA A MEDICINAL PRODUCT [None]
  - HERPES SIMPLEX SEROLOGY POSITIVE [None]
